FAERS Safety Report 4848695-2 (Version None)
Quarter: 2005Q4

REPORT INFORMATION
  Report Type: 
  Country: None (occurrence: None)
  Receive Date: 20051208
  Receipt Date: 20051129
  Transmission Date: 20060501
  Serious: Yes (Hospitalization)
  Sender: FDA-Public Use
  Company Number: PHEH2005US12955

PATIENT
  Age: 85 Year
  Sex: Female

DRUGS (3)
  1. WARFARIN SODIUM [Suspect]
  2. FENOFIBRATE [Concomitant]
  3. ZELNORM [Suspect]
     Indication: CONSTIPATION
     Dates: start: 20051001, end: 20051001

REACTIONS (4)
  - ABDOMINAL PAIN [None]
  - DIARRHOEA HAEMORRHAGIC [None]
  - INTESTINAL ISCHAEMIA [None]
  - VOMITING [None]
